FAERS Safety Report 5226929-2 (Version None)
Quarter: 2007Q1

REPORT INFORMATION
  Report Type: 
  Country: None (occurrence: None)
  Receive Date: 20070201
  Receipt Date: 20070201
  Transmission Date: 20070707
  Serious: No
  Sender: FDA-Public Use
  Company Number: None

PATIENT
  Age: 59 Year
  Sex: Male
  Weight: 74.8435 kg

DRUGS (1)
  1. PHENYTOIN [Suspect]
     Indication: GRAND MAL CONVULSION
     Dosage: 1 CAPSULE THREE TIMES A DAY/VERBALLY BY MD

REACTIONS (4)
  - ACTIVITIES OF DAILY LIVING IMPAIRED [None]
  - CONVULSION [None]
  - DRUG LEVEL DECREASED [None]
  - IMPAIRED DRIVING ABILITY [None]
